FAERS Safety Report 11362140 (Version 1)
Quarter: 2015Q3

REPORT INFORMATION
  Report Type: Spontaneous
  Country: US (occurrence: US)
  Receive Date: 20150810
  Receipt Date: 20150810
  Transmission Date: 20151125
  Serious: Yes (Death, Hospitalization)
  Sender: FDA-Public Use
  Company Number: US-PFIZER INC-2015245632

PATIENT
  Age: 35 Year
  Sex: Female

DRUGS (1)
  1. DILANTIN [Suspect]
     Active Substance: PHENYTOIN
     Indication: SEIZURE
     Dosage: 0.1 G, 3X/DAY

REACTIONS (6)
  - Respiratory paralysis [Fatal]
  - Skin haemorrhage [Unknown]
  - Cerebral haemorrhage [Unknown]
  - Mouth haemorrhage [Unknown]
  - Gastrointestinal haemorrhage [Unknown]
  - Erythema multiforme [Unknown]
